FAERS Safety Report 8352696-X (Version None)
Quarter: 2012Q2

REPORT INFORMATION
  Report Type: 
  Country: None (occurrence: None)
  Receive Date: 20120511
  Receipt Date: 20111228
  Transmission Date: 20120825
  Serious: Yes (Other)
  Sender: FDA-Public Use
  Company Number: US-GLAXOSMITHKLINE-A0959332A

PATIENT
  Age: 27 Year
  Sex: Male

DRUGS (3)
  1. ZOLOFT [Concomitant]
  2. INNOPRAN XL [Suspect]
     Indication: MITRAL VALVE PROLAPSE
     Dosage: 80MG PER DAY
     Route: 048
     Dates: start: 20000101
  3. FORTICAL [Concomitant]

REACTIONS (1)
  - LUPUS-LIKE SYNDROME [None]
